FAERS Safety Report 9533082 (Version 1)
Quarter: 2013Q2

REPORT INFORMATION
  Report Type: Spontaneous
  Country: US (occurrence: None)
  Receive Date: 20130418
  Receipt Date: 20130418
  Transmission Date: 20140414
  Serious: Yes (Other)
  Sender: FDA-Public Use
  Company Number: 2012PROUSA02398

PATIENT
  Age: 71 Year
  Sex: Male
  Weight: 104 kg

DRUGS (1)
  1. PROVENGE [Suspect]
     Indication: PROSTATE CANCER METASTATIC
     Dosage: 250 ML, SINGLE, INTRAVENOUS
     Route: 042
     Dates: start: 20121207, end: 20121207

REACTIONS (8)
  - Haematoma [None]
  - Pallor [None]
  - Fall [None]
  - Contusion [None]
  - Dizziness [None]
  - Nausea [None]
  - Back pain [None]
  - Muscle spasms [None]
